FAERS Safety Report 7324787-3 (Version None)
Quarter: 2011Q1

REPORT INFORMATION
  Report Type: 
  Country: None (occurrence: None)
  Receive Date: 20110301
  Receipt Date: 20110224
  Transmission Date: 20110831
  Serious: Yes (Other)
  Sender: FDA-Public Use
  Company Number: US-PFIZER INC-2011041239

PATIENT
  Sex: Female
  Weight: 58.957 kg

DRUGS (1)
  1. ROBITUSSIN COUGH AND COLD CF [Suspect]
     Indication: COUGH
     Dosage: 2 TEASPOONS ONCE
     Route: 048
     Dates: start: 20110222, end: 20110222

REACTIONS (3)
  - DIZZINESS [None]
  - DIARRHOEA [None]
  - HYPOAESTHESIA [None]
